FAERS Safety Report 8474023-X (Version None)
Quarter: 2012Q2

REPORT INFORMATION
  Report Type: 
  Country: None (occurrence: None)
  Receive Date: 20120628
  Receipt Date: 20120521
  Transmission Date: 20120825
  Serious: Yes (Other)
  Sender: FDA-Public Use
  Company Number: US-MYLANLABS-2012S1007333

PATIENT
  Age: 11 Year
  Sex: Male

DRUGS (3)
  1. GUANFACINE [Concomitant]
     Dates: start: 20111128
  2. CLOZAPINE [Suspect]
     Dates: start: 20120301, end: 20120413
  3. CLOZAPINE [Suspect]
     Dates: start: 20120316, end: 20120301

REACTIONS (2)
  - LEUKOPENIA [None]
  - GRANULOCYTOPENIA [None]
